FAERS Safety Report 24660388 (Version 1)
Quarter: 2024Q4

REPORT INFORMATION
  Report Type: Report from Study
  Country: GB (occurrence: GB)
  Receive Date: 20241125
  Receipt Date: 20241125
  Transmission Date: 20250115
  Serious: Yes (Other)
  Sender: AMGEN
  Company Number: GB-AMGEN-GBRSL2024228755

PATIENT
  Age: 52 Year
  Sex: Male

DRUGS (1)
  1. REPATHA [Suspect]
     Active Substance: EVOLOCUMAB
     Indication: Product used for unknown indication
     Dosage: 140 MILLIGRAM, 1ML SOLUTION FOR INJECTION PEN PK2
     Route: 065
     Dates: start: 202409

REACTIONS (4)
  - Arrhythmia [Unknown]
  - Muscular weakness [Unknown]
  - Erythema [Unknown]
  - Headache [Unknown]
